FAERS Safety Report 9412933 (Version 1)
Quarter: 2013Q2

REPORT INFORMATION
  Report Type: Spontaneous
  Country: US (occurrence: None)
  Receive Date: 20130621
  Receipt Date: 20130621
  Transmission Date: 20140414
  Serious: Yes (Hospitalization)
  Sender: FDA-Public Use
  Company Number: 130169

PATIENT
  Age: 70 Year
  Sex: Male

DRUGS (1)
  1. SUPREP BOWEL PREP KIT [Suspect]
     Indication: COLONOSCOPY
     Dosage: 2X 6OZ BOTTLES 1X ORAL
     Route: 048
     Dates: start: 20130522, end: 20130523

REACTIONS (5)
  - Abdominal pain [None]
  - Vomiting [None]
  - Diverticulitis [None]
  - Haemorrhoids [None]
  - Polyp [None]
